FAERS Safety Report 8513102-5 (Version None)
Quarter: 2012Q3

REPORT INFORMATION
  Report Type: 
  Country: None (occurrence: None)
  Receive Date: 20120716
  Receipt Date: 20120709
  Transmission Date: 20120928
  Serious: Yes (Hospitalization)
  Sender: FDA-Public Use
  Company Number: US-B.I. PHARMACEUTICALS,INC./RIDGEFIELD-2012-BP-05463BP

PATIENT
  Sex: Female
  Weight: 77.11 kg

DRUGS (5)
  1. METFORMIN HYDROCHLORIDE [Concomitant]
     Dosage: 1000 MG
  2. TRADJENTA [Suspect]
     Indication: TYPE 2 DIABETES MELLITUS
     Dosage: 5 MG
     Route: 048
     Dates: start: 20110621, end: 20111201
  3. PRAVASTATIN [Concomitant]
  4. CRESTOR [Concomitant]
  5. PROPYLTHIOURACIL [Concomitant]
     Dosage: 100 MG

REACTIONS (1)
  - PANCREATITIS ACUTE [None]
